FAERS Safety Report 17960156 (Version 1)
Quarter: 2020Q2

REPORT INFORMATION
  Report Type: Spontaneous
  Country: FR (occurrence: FR)
  Receive Date: 20200630
  Receipt Date: 20200630
  Transmission Date: 20200714
  Serious: Yes (Life-Threatening)
  Sender: FDA-Public Use
  Company Number: FR-TEVA-2020-FR-1792108

PATIENT
  Age: 37 Year
  Sex: Male
  Weight: 49.4 kg

DRUGS (8)
  1. KARDEGIC [Concomitant]
     Active Substance: ASPIRIN DL-LYSINE
  2. LINEZOLID. [Suspect]
     Active Substance: LINEZOLID
     Indication: ABDOMINAL INFECTION
     Dosage: 1200 MG
     Route: 042
     Dates: start: 20200602, end: 20200609
  3. ATENOLOL ARROW 50 MG, COMPRIM? PELLICUL? S?CABLE [Suspect]
     Active Substance: ATENOLOL
     Indication: HYPERTENSION
     Dosage: 2 DOSAGE FORMS
     Route: 048
     Dates: start: 20200518, end: 20200604
  4. FUNGIZONE [Concomitant]
     Active Substance: AMPHOTERICIN B
  5. MERONEM [Suspect]
     Active Substance: MEROPENEM
     Indication: ABDOMINAL INFECTION
     Route: 042
     Dates: start: 20200523, end: 20200608
  6. NICOPATCH [Concomitant]
     Active Substance: NICOTINE
  7. AMLODIPINE ARROW 5 MG, COMPRIM? [Suspect]
     Active Substance: AMLODIPINE BESYLATE
     Indication: HYPERTENSION
     Dosage: 2 DOSAGE FORMS
     Route: 048
     Dates: start: 20200526, end: 20200604
  8. PRIMPERAN [Suspect]
     Active Substance: METOCLOPRAMIDE HYDROCHLORIDE
     Indication: VOMITING
     Dosage: 30 MG
     Route: 042
     Dates: start: 20200520, end: 20200605

REACTIONS (2)
  - Sinus bradycardia [Not Recovered/Not Resolved]
  - Cardio-respiratory arrest [Not Recovered/Not Resolved]

NARRATIVE: CASE EVENT DATE: 20200605
